FAERS Safety Report 12020944 (Version 1)
Quarter: 2016Q1

REPORT INFORMATION
  Report Type: Report from Study
  Country: US (occurrence: US)
  Receive Date: 20160206
  Receipt Date: 20160206
  Transmission Date: 20160526
  Serious: No
  Sender: FDA-Public Use
  Company Number: US-ABBVIE-15K-163-1467738-00

PATIENT
  Age: 67 Year
  Sex: Male
  Weight: 79.9 kg

DRUGS (9)
  1. PANTOPRAZOLE [Concomitant]
     Active Substance: PANTOPRAZOLE SODIUM
     Indication: GASTROOESOPHAGEAL REFLUX DISEASE
  2. HUMIRA [Suspect]
     Active Substance: ADALIMUMAB
     Indication: CROHN^S DISEASE
     Dosage: LOADING DOSE
     Route: 058
     Dates: start: 201407, end: 201407
  3. ENTOCORT [Concomitant]
     Active Substance: BUDESONIDE
     Indication: CROHN^S DISEASE
  4. AZATHIOPRINE. [Concomitant]
     Active Substance: AZATHIOPRINE
     Indication: DRUG THERAPY ENHANCEMENT
  5. HUMIRA [Suspect]
     Active Substance: ADALIMUMAB
     Dosage: LOADING DOSE
     Route: 058
     Dates: start: 2014, end: 2014
  6. LOSARTIN [Concomitant]
     Active Substance: LOSARTAN
     Indication: HYPERTENSION
  7. HUMIRA [Suspect]
     Active Substance: ADALIMUMAB
     Route: 058
     Dates: start: 2014, end: 201505
  8. HUMIRA [Suspect]
     Active Substance: ADALIMUMAB
     Route: 058
     Dates: start: 201505
  9. ALLOPURINOL. [Concomitant]
     Active Substance: ALLOPURINOL
     Indication: GOUT

REACTIONS (5)
  - Increased tendency to bruise [Not Recovered/Not Resolved]
  - Fatigue [Not Recovered/Not Resolved]
  - Arthralgia [Not Recovered/Not Resolved]
  - Abdominal pain [Recovering/Resolving]
  - Bowel movement irregularity [Recovering/Resolving]

NARRATIVE: CASE EVENT DATE: 20150101
